FAERS Safety Report 9531269 (Version 1)
Quarter: 2013Q3

REPORT INFORMATION
  Report Type: Spontaneous
  Country: US (occurrence: None)
  Receive Date: 20130916
  Receipt Date: 20130916
  Transmission Date: 20140515
  Serious: Yes (Life-Threatening, Hospitalization)
  Sender: FDA-Public Use
  Company Number: None

PATIENT
  Age: 60 Year
  Sex: Male
  Weight: 119.75 kg

DRUGS (1)
  1. AMIODARONE [Suspect]
     Indication: CARDIAC DISORDER
     Dosage: 1 PILL THREE TIMES DAILY TAKEN BY MOUTH
     Route: 048
     Dates: start: 20130813, end: 20130828

REACTIONS (9)
  - Skin discolouration [None]
  - Nausea [None]
  - Abnormal behaviour [None]
  - Muscular weakness [None]
  - Tremor [None]
  - Tremor [None]
  - Malaise [None]
  - Blood sodium decreased [None]
  - Cholelithiasis [None]
